FAERS Safety Report 7582641 (Version 1)
Quarter: 2020Q3

REPORT INFORMATION
  Report Type: Report from Study
  Country: GB (occurrence: GB)
  Receive Date: 20100913
  Receipt Date: 20100913
  Transmission Date: 20201104
  Serious: Yes (Hospitalization)
  Sender: FDA-Public Use
  Company Number: GB-WYE-H16795010

PATIENT
  Age: 64 Year
  Sex: Male

DRUGS (9)
  1. GEMCITABINE. [Suspect]
     Active Substance: GEMCITABINE
     Indication: MANTLE CELL LYMPHOMA
     Dosage: 931 MG SINGLE DOSE DAY 1
     Route: 042
     Dates: start: 20100805
  2. LANSOPRAZOLE. [Concomitant]
     Active Substance: LANSOPRAZOLE
     Indication: ANTACID THERAPY
     Dosage: UNSPECIFIED
     Dates: start: 20100804
  3. RITUXIMAB. [Suspect]
     Active Substance: RITUXIMAB
     Indication: MANTLE CELL LYMPHOMA
     Dosage: 700 MG SINGLE DOSE DAY 1
     Route: 042
     Dates: start: 20100805
  4. INOTUZUMAB OZOGAMICIN [Suspect]
     Active Substance: INOTUZUMAB OZOGAMICIN
     Indication: MANTLE CELL LYMPHOMA
     Dosage: 1.5 MG SINGLE DOSE DAY 1
     Route: 042
     Dates: start: 20100805
  5. DEXAMETHASONE. [Suspect]
     Active Substance: DEXAMETHASONE
     Indication: MANTLE CELL LYMPHOMA
     Dosage: 40 MG ONCE DAILY DAYS 1?4
     Route: 048
     Dates: start: 20100805
  6. DOMPERIDONE [Concomitant]
     Active Substance: DOMPERIDONE
     Indication: PROPHYLAXIS OF NAUSEA AND VOMITING
     Dosage: UNSPECIFIED
     Dates: start: 20100804
  7. CISPLATIN. [Suspect]
     Active Substance: CISPLATIN
     Indication: MANTLE CELL LYMPHOMA
     Dosage: 94 MG SINGLE DOSE DAY 1
     Route: 042
     Dates: start: 20100805
  8. MORPHINE SULFATE. [Concomitant]
     Active Substance: MORPHINE SULFATE
     Indication: PAIN
     Dosage: UNSPECIFIED
     Dates: start: 20100803
  9. ONDANSETRON [Concomitant]
     Active Substance: ONDANSETRON
     Indication: PROPHYLAXIS OF NAUSEA AND VOMITING
     Dosage: UNSPECIFIED
     Dates: start: 20100804

REACTIONS (1)
  - Tumour lysis syndrome [Recovered/Resolved]

NARRATIVE: CASE EVENT DATE: 20100805
